FAERS Safety Report 6186638-2 (Version None)
Quarter: 2009Q2

REPORT INFORMATION
  Report Type: 
  Country: None (occurrence: None)
  Receive Date: 20090507
  Receipt Date: 20090507
  Transmission Date: 20091009
  Serious: Yes (Other)
  Sender: FDA-Public Use
  Company Number: None

PATIENT
  Age: 25 Year
  Sex: Female
  Weight: 71.6683 kg

DRUGS (1)
  1. DOXYCYCLINE HYCLATE [Suspect]
     Indication: EAR INFECTION
     Dosage: 1 TABLET 2 TIMES DAILY PO
     Route: 048
     Dates: start: 20090325, end: 20090326

REACTIONS (5)
  - ANXIETY [None]
  - FATIGUE [None]
  - MALAISE [None]
  - NAUSEA [None]
  - VOMITING [None]
